FAERS Safety Report 14063607 (Version 1)
Quarter: 2017Q4

REPORT INFORMATION
  Report Type: Spontaneous
  Country: FI (occurrence: FI)
  Receive Date: 20171009
  Receipt Date: 20171009
  Transmission Date: 20180321
  Serious: Yes (Hospitalization, Other)
  Sender: FDA-Public Use
  Company Number: FI-GLAXOSMITHKLINE-FI2017GSK154113

PATIENT
  Sex: Female

DRUGS (1)
  1. VOLTAREN [Suspect]
     Active Substance: DICLOFENAC SODIUM
     Indication: NERVE COMPRESSION
     Dosage: UNK
     Dates: start: 201708, end: 20170829

REACTIONS (4)
  - Respiratory tract oedema [Unknown]
  - Rash [Unknown]
  - Anaphylactic reaction [Unknown]
  - Eye swelling [Unknown]

NARRATIVE: CASE EVENT DATE: 20170829
